FAERS Safety Report 12389862 (Version 1)
Quarter: 2016Q2

REPORT INFORMATION
  Report Type: Report from Study
  Country: JP (occurrence: KR)
  Receive Date: 20160520
  Receipt Date: 20160520
  Transmission Date: 20160815
  Serious: No
  Sender: FDA-Public Use
  Company Number: KR-FRI-1000083065

PATIENT
  Age: 29 Year
  Sex: Female
  Weight: 61.3 kg

DRUGS (16)
  1. ZOLPIDEM [Concomitant]
     Active Substance: ZOLPIDEM\ZOLPIDEM TARTRATE
     Route: 048
     Dates: start: 20130527, end: 20130531
  2. LORAZEPAM. [Concomitant]
     Active Substance: LORAZEPAM
     Route: 048
     Dates: start: 20130531, end: 20130608
  3. LIDCAIN [Concomitant]
     Indication: LOCAL ANAESTHESIA
     Dates: start: 20130718, end: 20130718
  4. LORAZEPAM. [Concomitant]
     Active Substance: LORAZEPAM
     Indication: ANXIETY
     Route: 030
     Dates: start: 20130528, end: 20130528
  5. TRAMADOL. [Concomitant]
     Active Substance: TRAMADOL
     Indication: STAB WOUND
     Route: 042
     Dates: start: 20130718, end: 20130730
  6. AMISULPRIDE [Concomitant]
     Active Substance: AMISULPRIDE
     Route: 048
     Dates: start: 20130722, end: 20130724
  7. CEFAZOLIN [Concomitant]
     Active Substance: CEFAZOLIN
     Indication: INFECTION PROPHYLAXIS
     Route: 042
     Dates: start: 20130718, end: 20130718
  8. ZOLPIDEM [Concomitant]
     Active Substance: ZOLPIDEM\ZOLPIDEM TARTRATE
     Indication: INSOMNIA
     Route: 048
     Dates: start: 20130522, end: 20130522
  9. OLANZAPINE. [Concomitant]
     Active Substance: OLANZAPINE
     Indication: SCHIZOPHRENIA
     Route: 030
     Dates: start: 20130718, end: 20130719
  10. AMISULPRIDE [Concomitant]
     Active Substance: AMISULPRIDE
     Route: 048
     Dates: start: 20130721, end: 20130721
  11. AMISULPRIDE [Concomitant]
     Active Substance: AMISULPRIDE
     Route: 048
     Dates: start: 20130725, end: 20130726
  12. AMISULPRIDE [Concomitant]
     Active Substance: AMISULPRIDE
     Route: 048
     Dates: start: 20130726, end: 20130729
  13. CARIPRAZINE [Suspect]
     Active Substance: CARIPRAZINE
     Indication: SCHIZOPHRENIA
     Dates: start: 20130521, end: 20130717
  14. AMISULPRIDE [Concomitant]
     Active Substance: AMISULPRIDE
     Indication: SCHIZOPHRENIA
     Route: 048
     Dates: start: 20130718, end: 20130718
  15. AMISULPRIDE [Concomitant]
     Active Substance: AMISULPRIDE
     Route: 048
     Dates: start: 20130719, end: 20130720
  16. MYDRIN-P [Concomitant]
     Active Substance: PHENYLEPHRINE HYDROCHLORIDE\TROPICAMIDE
     Indication: MYDRIASIS
     Dates: start: 20130704, end: 20130704

REACTIONS (1)
  - Cataract [Not Recovered/Not Resolved]

NARRATIVE: CASE EVENT DATE: 20131001
